FAERS Safety Report 8235433 (Version 3)
Quarter: 2014Q4

REPORT INFORMATION
  Report Type: Spontaneous
  Country: US (occurrence: US)
  Receive Date: 20111108
  Receipt Date: 20141219
  Transmission Date: 20150529
  Serious: Yes (Other)
  Sender: FDA-Public Use
  Company Number: US-ELI_LILLY_AND_COMPANY-US201111000946

PATIENT
  Age: 77 Year
  Sex: Male

DRUGS (6)
  1. PEMETREXED [Suspect]
     Active Substance: PEMETREXED
     Indication: LUNG ADENOCARCINOMA STAGE IV
     Dosage: 500 MG/M2, UNK
  2. LOSARTAN [Concomitant]
     Active Substance: LOSARTAN
  3. PEMETREXED [Suspect]
     Active Substance: PEMETREXED
     Dosage: 375 MG/M2, UNK
  4. CARBOPLATIN. [Concomitant]
     Active Substance: CARBOPLATIN
     Indication: LUNG ADENOCARCINOMA STAGE IV
  5. AMLODIPINE [Concomitant]
     Active Substance: AMLODIPINE BESYLATE
  6. BEVACIZUMAB [Concomitant]
     Active Substance: BEVACIZUMAB
     Indication: LUNG ADENOCARCINOMA STAGE IV

REACTIONS (4)
  - Tubulointerstitial nephritis [Unknown]
  - Nephropathy toxic [Unknown]
  - Arteriosclerosis [Unknown]
  - Renal impairment [Unknown]
